FAERS Safety Report 7263542-X (Version None)
Quarter: 2011Q1

REPORT INFORMATION
  Report Type: 
  Country: None (occurrence: None)
  Receive Date: 20110130
  Receipt Date: 20101027
  Transmission Date: 20110831
  Serious: No
  Sender: FDA-Public Use
  Company Number: US-ABBOTT-10P-163-0681915-00

PATIENT
  Age: 49 Year
  Sex: Female

DRUGS (3)
  1. OPANA [Concomitant]
     Indication: INTERVERTEBRAL DISC DEGENERATION
  2. HUMIRA [Suspect]
     Indication: RHEUMATOID ARTHRITIS
     Dates: start: 20100701
  3. METHOTREXATE [Concomitant]
     Indication: PRODUCT USED FOR UNKNOWN INDICATION
     Route: 048

REACTIONS (3)
  - RASH PRURITIC [None]
  - RASH [None]
  - RASH VESICULAR [None]
